FAERS Safety Report 10527989 (Version 1)
Quarter: 2014Q4

REPORT INFORMATION
  Report Type: Spontaneous
  Country: FR (occurrence: FR)
  Receive Date: 20141020
  Receipt Date: 20141020
  Transmission Date: 20150528
  Serious: Yes (Other)
  Sender: FDA-Public Use
  Company Number: PHHY2014FR133222

PATIENT
  Age: 45 Year
  Sex: Female

DRUGS (2)
  1. GENTAMICIN. [Suspect]
     Active Substance: GENTAMICIN
     Indication: PERITONITIS
     Route: 065
  2. CEFTRIAXONE. [Suspect]
     Active Substance: CEFTRIAXONE
     Indication: PERITONITIS
     Route: 065

REACTIONS (12)
  - Acute kidney injury [Recovering/Resolving]
  - Candida infection [Recovering/Resolving]
  - Erythema [Recovered/Resolved]
  - Abdominal pain lower [Recovered/Resolved]
  - Fungal infection [Recovering/Resolving]
  - Vulvovaginal burning sensation [Recovered/Resolved]
  - Pyrexia [Recovered/Resolved]
  - Pyuria [Recovered/Resolved]
  - Vaginal discharge [Recovered/Resolved]
  - Vulvovaginal mycotic infection [Recovering/Resolving]
  - Device occlusion [Recovering/Resolving]
  - Oliguria [Recovering/Resolving]
